FAERS Safety Report 7601611 (Version 3)
Quarter: 2013Q4

REPORT INFORMATION
  Report Type: Spontaneous
  Country: GB (occurrence: None)
  Receive Date: 20100909
  Receipt Date: 20131119
  Transmission Date: 20140711
  Serious: Yes (Other)
  Sender: FDA-Public Use
  Company Number: 20100403

PATIENT
  Age: 52 Year
  Sex: Female

DRUGS (4)
  1. METHYLENE BLUE [Suspect]
     Indication: PARATHYROID DISORDER
     Dosage: 7.5 MG/KG (650 MG INTRAVENOUS DRIP)
     Route: 041
  2. VENLAFAXINE HYDROCHLORIDE [Suspect]
     Route: 041
  3. FERROUS SULFATE [Concomitant]
  4. MEBEVERINE [Concomitant]

REACTIONS (9)
  - Aphasia [None]
  - Confusional state [None]
  - Delayed recovery from anaesthesia [None]
  - Nystagmus [None]
  - Drug interaction [None]
  - Toxicity to various agents [None]
  - Blood calcium decreased [None]
  - Off label use [None]
  - Serotonin syndrome [None]
